FAERS Safety Report 12054681 (Version 1)
Quarter: 2016Q1

REPORT INFORMATION
  Report Type: Spontaneous
  Country: US (occurrence: US)
  Receive Date: 20160209
  Receipt Date: 20160209
  Transmission Date: 20160526
  Serious: No
  Sender: FDA-Public Use
  Company Number: US-ABBVIE-15P-163-1469479-00

PATIENT
  Sex: Female

DRUGS (2)
  1. REMICADE [Suspect]
     Active Substance: INFLIXIMAB
     Indication: PRODUCT USED FOR UNKNOWN INDICATION
     Route: 065
  2. HUMIRA [Suspect]
     Active Substance: ADALIMUMAB
     Indication: PRODUCT USED FOR UNKNOWN INDICATION
     Route: 065

REACTIONS (10)
  - Intestinal ulcer [Unknown]
  - Gastritis [Unknown]
  - Depression [Unknown]
  - Restlessness [Unknown]
  - Muscle spasms [Unknown]
  - Appendicitis [Unknown]
  - Oesophageal spasm [Unknown]
  - Sleep disorder [Unknown]
  - Inflammation [Unknown]
  - Malaise [Unknown]
